FAERS Safety Report 8399077-0 (Version None)
Quarter: 2012Q2

REPORT INFORMATION
  Report Type: 
  Country: None (occurrence: None)
  Receive Date: 20120531
  Receipt Date: 20120523
  Transmission Date: 20120825
  Serious: Yes (Other)
  Sender: FDA-Public Use
  Company Number: JP-B.I. PHARMACEUTICALS,INC./RIDGEFIELD-2012-BP-12636YA

PATIENT
  Age: 73 Year
  Sex: Male

DRUGS (9)
  1. MUCODYNE (CARBOCISTEINE) [Concomitant]
     Route: 048
  2. MIRABEGRON [Suspect]
     Indication: HYPERTONIC BLADDER
     Dosage: 50 MG
     Route: 048
     Dates: start: 20120509
  3. TAMSULOSIN HCL [Suspect]
     Indication: BENIGN PROSTATIC HYPERPLASIA
     Dosage: 0.2 MG
     Route: 048
  4. ZOLPIDEM [Suspect]
     Dosage: 10 MG
     Route: 048
  5. EVIPROSTAT (CHIMAPHILA UMBELLATA, EQUISETUM ARVENSE, MANGANESE CHLORID [Concomitant]
  6. RABEPRAZOLE SODIUM [Concomitant]
  7. GASMOTIN (MOSAPRIDE CITRATE) [Concomitant]
     Route: 048
  8. DOGMATYL [Suspect]
     Dosage: 50 MG
     Route: 048
  9. CEROCRAL (IFENPRODIL TARTRATE) [Concomitant]
     Route: 048

REACTIONS (1)
  - HYPERTENSION [None]
